FAERS Safety Report 15759613 (Version 1)
Quarter: 2018Q4

REPORT INFORMATION
  Report Type: Spontaneous
  Country: CA (occurrence: CA)
  Receive Date: 20181226
  Receipt Date: 20181226
  Transmission Date: 20190205
  Serious: No
  Sender: FDA-Public Use
  Company Number: CA-CELLTRION INC.-2018CA021843

PATIENT

DRUGS (19)
  1. INFLECTRA [Suspect]
     Active Substance: INFLIXIMAB-DYYB
     Dosage: 5 MG/KG, EVERY 0, 2, 6 THEN EVERY 8 WEEKS; UNKNOWN
     Route: 065
     Dates: start: 20181213
  2. INFLECTRA [Suspect]
     Active Substance: INFLIXIMAB-DYYB
     Dosage: 395 MG (PER PRESCRIPTION 5MG/KG (EVERY 0, 2, 6 THEN EVERY 8 WEEKS));
     Route: 042
     Dates: start: 20180822
  3. NAPROSYN [Concomitant]
     Active Substance: NAPROXEN
  4. INFLECTRA [Suspect]
     Active Substance: INFLIXIMAB-DYYB
     Dosage: 395 MG (PER PRESCRIPTION 5MG/KG (EVERY 0, 2, 6 THEN EVERY 8 WEEKS));
     Route: 042
     Dates: start: 20181018
  5. FERODAN [Concomitant]
  6. JAMP FER FC [Concomitant]
     Dosage: UNK
  7. INFLECTRA [Suspect]
     Active Substance: INFLIXIMAB-DYYB
     Dosage: 5 MG/KG, CYCLIC (EVERY 0, 2,6 THEN EVERY 8 WEEKS)
     Route: 042
     Dates: start: 20180724
  8. ALESSE 28 [Concomitant]
     Active Substance: ETHINYL ESTRADIOL\LEVONORGESTREL
     Dosage: UNK
  9. LAX-A-DAY [Concomitant]
  10. AMOXICILLINE TEVA [Concomitant]
     Active Substance: AMOXICILLIN
  11. INFLECTRA [Suspect]
     Active Substance: INFLIXIMAB-DYYB
     Indication: CROHN^S DISEASE
     Dosage: 5 MG/KG, CYCLIC (EVERY 0, 2, 6 THEN EVERY 8 WEEKS)
     Route: 042
     Dates: start: 20180710
  12. PERCOCET                           /00446701/ [Concomitant]
     Active Substance: ACETAMINOPHEN\OXYCODONE HYDROCHLORIDE\OXYCODONE TEREPHTHALATE
  13. PERIDEX                            /00016001/ [Concomitant]
     Active Substance: DEXAMETHASONE
  14. EUROFOLIC [Concomitant]
     Active Substance: LEVOLEUCOVORIN CALCIUM
     Dosage: UNK
  15. METHOTREXATE. [Concomitant]
     Active Substance: METHOTREXATE
     Dosage: UNK
  16. PMS-FERROUS SULFATE [Concomitant]
     Dosage: UNK
  17. VITAMIN D                          /00107901/ [Concomitant]
     Active Substance: ERGOCALCIFEROL
  18. DI-GEL                             /00416501/ [Concomitant]
     Dosage: UNK
  19. PICO SALAX [Concomitant]

REACTIONS (7)
  - Incorrect product administration duration [Unknown]
  - Incorrect dose administered [Unknown]
  - Fatigue [Unknown]
  - Nausea [Unknown]
  - Antibody test positive [Unknown]
  - Product use issue [Unknown]
  - Product prescribing error [Unknown]

NARRATIVE: CASE EVENT DATE: 2018
